FAERS Safety Report 4750640-5 (Version None)
Quarter: 2005Q3

REPORT INFORMATION
  Report Type: 
  Country: None (occurrence: None)
  Receive Date: 20050823
  Receipt Date: 20050815
  Transmission Date: 20060218
  Serious: Yes (Other)
  Sender: FDA-Public Use
  Company Number: PHBS2005JP11893

PATIENT
  Age: 39 Year
  Sex: Female

DRUGS (2)
  1. CYCLOSPORINE [Suspect]
     Indication: GRAFT VERSUS HOST DISEASE
  2. CORTICOSTEROIDS FOR SYSTEMIC USE [Concomitant]
     Indication: GRAFT VERSUS HOST DISEASE

REACTIONS (10)
  - ADENOVIRAL HAEMORRHAGIC CYSTITIS [None]
  - ANAEMIA [None]
  - ANAEMIA HAEMOLYTIC AUTOIMMUNE [None]
  - BLOOD LACTATE DEHYDROGENASE INCREASED [None]
  - COLD AGGLUTININS POSITIVE [None]
  - HAEMATURIA [None]
  - HAEMOLYSIS [None]
  - MICTURITION URGENCY [None]
  - RETICULOCYTOSIS [None]
  - VIRUS URINE TEST POSITIVE [None]
